FAERS Safety Report 9701181 (Version 2)
Quarter: 2015Q3

REPORT INFORMATION
  Report Type: Spontaneous
  Country: US (occurrence: US)
  Receive Date: 20131121
  Receipt Date: 20150803
  Transmission Date: 20151125
  Serious: No
  Sender: FDA-Public Use
  Company Number: US-GILEAD-2008-0015980

PATIENT
  Age: 70 Year
  Sex: Female

DRUGS (13)
  1. DIGOXIN. [Concomitant]
     Active Substance: DIGOXIN
  2. FUROSEMIDE. [Concomitant]
     Active Substance: FUROSEMIDE
  3. METFORMIN [Concomitant]
     Active Substance: METFORMIN HYDROCHLORIDE
  4. MULTIVITAMIN [Concomitant]
     Active Substance: VITAMINS
  5. NITRO PATCH [Concomitant]
     Active Substance: NITROGLYCERIN
  6. JANUVIA [Concomitant]
     Active Substance: SITAGLIPTIN PHOSPHATE
  7. VITAMIN C [Concomitant]
     Active Substance: ASCORBIC ACID
  8. ASA [Concomitant]
     Active Substance: ASPIRIN
  9. LETAIRIS [Suspect]
     Active Substance: AMBRISENTAN
     Indication: PULMONARY HYPERTENSION
     Route: 048
     Dates: start: 20080328, end: 20080330
  10. NITROSTAT [Concomitant]
     Active Substance: NITROGLYCERIN
  11. AMBIEN [Concomitant]
     Active Substance: ZOLPIDEM TARTRATE
  12. VITAMIN E [Concomitant]
     Active Substance: .ALPHA.-TOCOPHEROL
  13. COZAAR [Concomitant]
     Active Substance: LOSARTAN POTASSIUM

REACTIONS (7)
  - Nausea [Unknown]
  - Dyspnoea [Unknown]
  - Decreased appetite [Unknown]
  - Chest pain [Unknown]
  - Tremor [Unknown]
  - Nasal congestion [Unknown]
  - Palpitations [Unknown]

NARRATIVE: CASE EVENT DATE: 20080328
